FAERS Safety Report 6752833-4 (Version None)
Quarter: 2010Q2

REPORT INFORMATION
  Report Type: 
  Country: None (occurrence: None)
  Receive Date: 20100603
  Receipt Date: 20100524
  Transmission Date: 20101027
  Serious: Yes (Hospitalization, Other)
  Sender: FDA-Public Use
  Company Number: US-BIOGENIDEC-2009BI021382

PATIENT
  Age: 66 Year
  Sex: Female

DRUGS (3)
  1. AVONEX [Suspect]
     Indication: MULTIPLE SCLEROSIS
     Route: 030
  2. AVONEX [Suspect]
     Route: 030
  3. AVONEX [Suspect]
     Route: 030

REACTIONS (7)
  - ANAEMIA [None]
  - BREAST CANCER [None]
  - BREAST CANCER RECURRENT [None]
  - BREAST PROSTHESIS IMPLANTATION [None]
  - DEVICE RELATED INFECTION [None]
  - NEOPLASM MALIGNANT [None]
  - POST PROCEDURAL COMPLICATION [None]
